FAERS Safety Report 9037119 (Version 1)
Quarter: 2013Q1

REPORT INFORMATION
  Report Type: Report from Study
  Country: US (occurrence: US)
  Receive Date: 20130129
  Receipt Date: 20130129
  Transmission Date: 20140127
  Serious: No
  Sender: FDA-Public Use
  Company Number: US-ABBOTT-12P-163-0895639-00

PATIENT
  Age: 72 Year
  Sex: Male

DRUGS (6)
  1. HUMIRA 40 MG/0.8 ML PEN [Suspect]
     Indication: CROHN^S DISEASE
     Dosage: LOADING DOSE
     Dates: start: 20111224
  2. HUMIRA 40 MG/0.8 ML PEN [Suspect]
     Dosage: 2ND LOADING DOSE
     Dates: start: 20120106
  3. HUMIRA 40 MG/0.8 ML PEN [Suspect]
     Dates: start: 20120120
  4. FLOMAX [Concomitant]
     Indication: PROSTATIC DISORDER
     Route: 048
  5. OTHER MEDICATION [Concomitant]
     Indication: PROSTATIC DISORDER
  6. VITAMIN D [Concomitant]
     Indication: VITAMIN SUPPLEMENTATION
     Route: 048

REACTIONS (4)
  - Abdominal pain upper [Not Recovered/Not Resolved]
  - Back pain [Unknown]
  - Faecal volume decreased [Unknown]
  - Decreased appetite [Unknown]
